FAERS Safety Report 16036292 (Version 1)
Quarter: 2019Q1

REPORT INFORMATION
  Report Type: Spontaneous
  Country: US (occurrence: US)
  Receive Date: 20190305
  Receipt Date: 20190305
  Transmission Date: 20190418
  Serious: No
  Sender: FDA-Public Use
  Company Number: US-ALLERGAN-1834276US

PATIENT
  Age: 89 Year
  Sex: Female

DRUGS (2)
  1. ESTRACE [Suspect]
     Active Substance: ESTRADIOL
     Indication: BLOOD OESTROGEN DECREASED
     Dosage: 1 APPLICATOR VAGINALLY WEEKLY
     Route: 067
     Dates: start: 20180704
  2. ESTRACE [Suspect]
     Active Substance: ESTRADIOL
     Dosage: 1 APPLICATOR VAGINALLY WEEKLY
     Route: 067
     Dates: start: 20180704

REACTIONS (5)
  - Wrong technique in product usage process [Unknown]
  - Incorrect dose administered [Unknown]
  - Off label use [Unknown]
  - Product cleaning inadequate [Unknown]
  - Device difficult to use [Unknown]

NARRATIVE: CASE EVENT DATE: 20180704
